FAERS Safety Report 10873994 (Version 1)
Quarter: 2015Q1

REPORT INFORMATION
  Report Type: Report from Study
  Country: ZA (occurrence: ZA)
  Receive Date: 20150227
  Receipt Date: 20150227
  Transmission Date: 20150721
  Serious: Yes (Life-Threatening, Hospitalization, Other)
  Sender: FDA-Public Use
  Company Number: ZA-009507513-1412ZAF004514

PATIENT
  Age: 9 Year
  Sex: Female
  Weight: 22.65 kg

DRUGS (14)
  1. EFAVIRENZ [Suspect]
     Active Substance: EFAVIRENZ
     Indication: ANTIRETROVIRAL THERAPY
     Dosage: UNK, BID
     Route: 048
     Dates: start: 20141126, end: 20141204
  2. LAMIVUDINE. [Suspect]
     Active Substance: LAMIVUDINE
     Dosage: UNK, BID
     Route: 048
     Dates: start: 20141215
  3. RIMACTAZID [Suspect]
     Active Substance: ISONIAZID\RIFAMPIN
     Indication: EXTRAPULMONARY TUBERCULOSIS
     Dosage: UNK, QD
     Route: 048
     Dates: start: 20141015, end: 20141204
  4. VITAMINS (UNSPECIFIED) [Concomitant]
     Active Substance: VITAMINS
     Dosage: UNK
     Dates: start: 20141015
  5. EFAVIRENZ [Suspect]
     Active Substance: EFAVIRENZ
     Dosage: UNK, BID
     Route: 048
     Dates: start: 20141215
  6. BACTRIM [Suspect]
     Active Substance: SULFAMETHOXAZOLE\TRIMETHOPRIM
     Indication: ANTIFUNGAL PROPHYLAXIS
     Dosage: UNK, BID
     Route: 048
     Dates: start: 20141015, end: 20141204
  7. LAMIVUDINE. [Suspect]
     Active Substance: LAMIVUDINE
     Indication: ANTIRETROVIRAL THERAPY
     Dosage: UNK, BID
     Route: 048
     Dates: start: 20141015, end: 20141204
  8. ABACAVIR [Suspect]
     Active Substance: ABACAVIR
     Indication: ANTIRETROVIRAL THERAPY
     Dosage: 10 ML (200 MG), BID
     Route: 048
     Dates: start: 20141121, end: 20141204
  9. RALTEGRAVIR POTASSIUM [Suspect]
     Active Substance: RALTEGRAVIR POTASSIUM
     Dosage: 300 MG, BID
     Route: 048
     Dates: start: 20141125, end: 20141204
  10. RALTEGRAVIR POTASSIUM [Suspect]
     Active Substance: RALTEGRAVIR POTASSIUM
     Indication: ANTIRETROVIRAL THERAPY
     Dosage: 100 MG, TID
     Route: 048
     Dates: start: 20141118, end: 20141124
  11. ABACAVIR [Suspect]
     Active Substance: ABACAVIR
     Dosage: 20 ML (400 MG), BID
     Route: 048
     Dates: start: 20141118, end: 20141120
  12. PYRAZINAMIDE. [Suspect]
     Active Substance: PYRAZINAMIDE
     Indication: TUBERCULOSIS
     Dosage: UNK, QD
     Route: 048
     Dates: start: 20141015, end: 20141204
  13. ETHAMBUTOL HYDROCHLORIDE. [Suspect]
     Active Substance: ETHAMBUTOL HYDROCHLORIDE
     Indication: TUBERCULOSIS
     Dosage: UNK, QD
     Route: 048
     Dates: start: 20141015, end: 20141204
  14. PYRIDOXINE [Concomitant]
     Active Substance: PYRIDOXINE
     Dosage: UNK
     Dates: start: 20141015

REACTIONS (5)
  - Vomiting [Recovered/Resolved]
  - Alanine aminotransferase increased [Unknown]
  - Aspartate aminotransferase increased [Recovering/Resolving]
  - Diarrhoea [Recovered/Resolved]
  - Drug eruption [Recovering/Resolving]

NARRATIVE: CASE EVENT DATE: 20141203
